FAERS Safety Report 12651211 (Version 1)
Quarter: 2016Q3

REPORT INFORMATION
  Report Type: Spontaneous
  Country: US (occurrence: None)
  Receive Date: 20160812
  Receipt Date: 20160812
  Transmission Date: 20161109
  Serious: Yes (Hospitalization)
  Sender: FDA-Public Use
  Company Number: None

PATIENT
  Age: 75 Year
  Sex: Male
  Weight: 113 kg

DRUGS (1)
  1. VANCOMYCIN, 1 GM AND 5 GM VIALS MYLAN [Suspect]
     Active Substance: VANCOMYCIN

REACTIONS (3)
  - Blood creatinine increased [None]
  - Product measured potency issue [None]
  - Drug level above therapeutic [None]

NARRATIVE: CASE EVENT DATE: 20160715
